FAERS Safety Report 19644192 (Version 1)
Quarter: 2021Q3

REPORT INFORMATION
  Report Type: Spontaneous
  Country: FR (occurrence: CY)
  Receive Date: 20210801
  Receipt Date: 20210801
  Transmission Date: 20211014
  Serious: Yes (Hospitalization, Other)
  Sender: FDA-Public Use
  Company Number: FR-DEXPHARM-20211178

PATIENT
  Age: 11 Year
  Sex: Male

DRUGS (1)
  1. DIASEPTYL [Suspect]
     Active Substance: CHLORHEXIDINE
     Indication: INFECTION PROPHYLAXIS
     Dosage: DOSAGE NOT KNOWN
     Route: 003
     Dates: start: 20210314, end: 20210314

REACTIONS (4)
  - Blood pressure decreased [Recovered/Resolved]
  - Urticaria [Recovered/Resolved]
  - Tremor [Recovered/Resolved]
  - Malaise [Recovered/Resolved]

NARRATIVE: CASE EVENT DATE: 20210314
